FAERS Safety Report 20674608 (Version 3)
Quarter: 2022Q2

REPORT INFORMATION
  Report Type: Report from Study
  Country: US (occurrence: US)
  Receive Date: 20220405
  Receipt Date: 20220418
  Transmission Date: 20220721
  Serious: Yes (Hospitalization)
  Sender: FDA-Public Use
  Company Number: US-JNJFOC-20220353189

PATIENT
  Age: 39 Year
  Sex: Female
  Weight: 82.3 kg

DRUGS (4)
  1. EPOPROSTENOL SODIUM [Suspect]
     Active Substance: EPOPROSTENOL SODIUM
     Indication: Pulmonary arterial hypertension
     Route: 042
  2. EPOPROSTENOL SODIUM [Suspect]
     Active Substance: EPOPROSTENOL SODIUM
     Route: 042
  3. AMBRISENTAN [Concomitant]
     Active Substance: AMBRISENTAN
  4. TADALAFIL [Concomitant]
     Active Substance: TADALAFIL

REACTIONS (10)
  - Cellulitis [Unknown]
  - Device related infection [Unknown]
  - Pain in jaw [Unknown]
  - Product administration interrupted [Unknown]
  - Pallor [Unknown]
  - Dyspnoea [Unknown]
  - Chest pain [Unknown]
  - Fatigue [Unknown]
  - COVID-19 [Unknown]
  - Catheterisation cardiac [Unknown]

NARRATIVE: CASE EVENT DATE: 20220321
